FAERS Safety Report 4759039-9 (Version None)
Quarter: 2005Q3

REPORT INFORMATION
  Report Type: 
  Country: None (occurrence: None)
  Receive Date: 20050901
  Receipt Date: 20050610
  Transmission Date: 20060218
  Serious: Yes (Other)
  Sender: FDA-Public Use
  Company Number: US-GLAXOSMITHKLINE-B0384190A

PATIENT
  Age: 37 Year
  Sex: Female

DRUGS (5)
  1. ROPINIROLE HCL [Suspect]
     Indication: PARKINSON'S DISEASE
     Dosage: 1.5MG PER DAY
     Route: 065
  2. PRAMIPEXOLE [Suspect]
     Indication: DRUG USE FOR UNKNOWN INDICATION
     Route: 065
  3. LEVODOPA [Concomitant]
     Indication: DRUG USE FOR UNKNOWN INDICATION
     Route: 065
  4. SELEGILINE HCL [Concomitant]
     Indication: DRUG USE FOR UNKNOWN INDICATION
     Route: 065
  5. QUETIAPINE FUMARATE [Concomitant]
     Indication: DRUG USE FOR UNKNOWN INDICATION
     Dosage: 50MG AT NIGHT
     Route: 065

REACTIONS (12)
  - AGITATION [None]
  - DYSKINESIA [None]
  - ELEVATED MOOD [None]
  - ENERGY INCREASED [None]
  - INSOMNIA [None]
  - IRRITABILITY [None]
  - JEALOUS DELUSION [None]
  - LIBIDO INCREASED [None]
  - MANIA [None]
  - PARANOIA [None]
  - PSYCHOMOTOR HYPERACTIVITY [None]
  - TREMOR [None]
